FAERS Safety Report 7195469-6 (Version None)
Quarter: 2010Q4

REPORT INFORMATION
  Report Type: 
  Country: None (occurrence: None)
  Receive Date: 20101223
  Receipt Date: 20101004
  Transmission Date: 20110411
  Serious: No
  Sender: FDA-Public Use
  Company Number: US-AMGEN-KDL442767

PATIENT

DRUGS (12)
  1. ENBREL [Suspect]
     Indication: PRODUCT USED FOR UNKNOWN INDICATION
     Dosage: 50 MG, QWK
     Route: 058
  2. DULOXETIME HYDROCHLORIDE [Concomitant]
     Dosage: 60 MG, UNK
  3. MYCOPHENOLATE MOFETIL [Concomitant]
     Dosage: 500 MG, UNK
  4. FUROSEMIDE [Concomitant]
     Dosage: 20 MG, UNK
  5. PREDNISONE [Concomitant]
     Dosage: 5 MG, UNK
  6. PREGABALIN [Concomitant]
     Dosage: 75 MG, UNK
  7. ATENOLOL [Concomitant]
     Dosage: 50 MG, UNK
  8. LOVASTATIN [Concomitant]
     Dosage: 40 MG, UNK
  9. LISINOPRIL [Concomitant]
     Dosage: 10 MG, UNK
  10. CLOPIDOGREL BISULFATE [Concomitant]
     Dosage: 75 MG, UNK
  11. DOXEPIN HYDROCHLORIDE [Concomitant]
     Dosage: 100 MG, UNK
  12. METHIMAZOLE [Concomitant]
     Dosage: 5 MG, UNK

REACTIONS (2)
  - MALAISE [None]
  - NAUSEA [None]
